FAERS Safety Report 7768353-4 (Version None)
Quarter: 2011Q3

REPORT INFORMATION
  Report Type: 
  Country: None (occurrence: None)
  Receive Date: 20110922
  Receipt Date: 20110707
  Transmission Date: 20111222
  Serious: No
  Sender: FDA-Public Use
  Company Number: US-ASTRAZENECA-2011SE40509

PATIENT
  Age: 63 Year
  Sex: Female

DRUGS (2)
  1. SEROQUEL XR [Suspect]
     Indication: ANXIETY
     Route: 048
     Dates: start: 20100101
  2. SEROQUEL XR [Suspect]
     Route: 048
     Dates: start: 20100101

REACTIONS (1)
  - NEPHROLITHIASIS [None]
